FAERS Safety Report 10086561 (Version 1)
Quarter: 2014Q2

REPORT INFORMATION
  Report Type: Spontaneous
  Country: CN (occurrence: CN)
  Receive Date: 20140418
  Receipt Date: 20140418
  Transmission Date: 20141212
  Serious: Yes (Other)
  Sender: FDA-Public Use
  Company Number: CN-PFIZER INC-2014106953

PATIENT
  Age: 53 Year
  Sex: Male
  Weight: 70 kg

DRUGS (3)
  1. DIFLUCAN [Suspect]
     Indication: CANDIDA INFECTION
     Dosage: 200 MG, 1X/DAY
     Route: 041
     Dates: start: 20130309, end: 20130310
  2. AMINOPYRINE [Concomitant]
     Indication: PYREXIA
     Dosage: UNK
     Route: 030
     Dates: start: 20130309
  3. AMINOPYRINE [Concomitant]
     Indication: PAIN

REACTIONS (1)
  - Asthma [Recovered/Resolved]
